FAERS Safety Report 12075940 (Version 1)
Quarter: 2016Q1

REPORT INFORMATION
  Report Type: Spontaneous
  Country: BR (occurrence: BR)
  Receive Date: 20160214
  Receipt Date: 20160214
  Transmission Date: 20160526
  Serious: Yes (Death, Hospitalization, Other)
  Sender: FDA-Public Use
  Company Number: BR-ABBVIE-16K-020-1559666-00

PATIENT
  Age: 50 Year
  Sex: Female

DRUGS (2)
  1. HUMIRA [Suspect]
     Active Substance: ADALIMUMAB
     Indication: RHEUMATOID ARTHRITIS
     Route: 058
  2. ENBREL [Suspect]
     Active Substance: ETANERCEPT
     Indication: RHEUMATOID ARTHRITIS
     Route: 065

REACTIONS (11)
  - Pain [Unknown]
  - Drug effect incomplete [Unknown]
  - Renal impairment [Unknown]
  - Renal disorder [Unknown]
  - Blood pressure abnormal [Unknown]
  - Multiple organ dysfunction syndrome [Fatal]
  - Coma [Unknown]
  - Gastric disorder [Unknown]
  - Diabetes mellitus [Unknown]
  - Infection [Unknown]
  - Urinary tract infection [Unknown]

NARRATIVE: CASE EVENT DATE: 20140425
